FAERS Safety Report 14609229 (Version 1)
Quarter: 2018Q1

REPORT INFORMATION
  Report Type: Spontaneous
  Country: US (occurrence: US)
  Receive Date: 20180306
  Receipt Date: 20180306
  Transmission Date: 20180509
  Serious: Yes (Other)
  Sender: FDA-Public Use
  Company Number: None

PATIENT
  Age: 30 Year
  Sex: Female
  Weight: 71.55 kg

DRUGS (3)
  1. SIBUTRAMINE [Suspect]
     Active Substance: SIBUTRAMINE
     Dosage: ?          QUANTITY:1 CAPSULE(S);?
  2. MAGIC PILL (DIETARY SUPPLEMENT) [Suspect]
     Active Substance: DIETARY SUPPLEMENT
     Indication: WEIGHT CONTROL
     Dosage: ?          QUANTITY:1 CAPSULE(S);?
     Route: 048
     Dates: start: 20180212, end: 20180214
  3. LIPO PILL (DIETARY SUPPLEMENT) [Suspect]
     Active Substance: DIETARY SUPPLEMENT
     Indication: WEIGHT CONTROL
     Route: 048
     Dates: start: 20180212, end: 20180214

REACTIONS (2)
  - Heart rate increased [None]
  - Product formulation issue [None]

NARRATIVE: CASE EVENT DATE: 20180214
